FAERS Safety Report 21996438 (Version 2)
Quarter: 2023Q1

REPORT INFORMATION
  Report Type: Spontaneous
  Country: DE (occurrence: None)
  Receive Date: 20230215
  Receipt Date: 20230330
  Transmission Date: 20230418
  Serious: Yes (Other)
  Sender: FDA-Public Use
  Company Number: 2023A031749

PATIENT
  Sex: Male

DRUGS (11)
  1. BEVESPI AEROSPHERE [Suspect]
     Active Substance: FORMOTEROL FUMARATE\GLYCOPYRROLATE
     Indication: Chronic obstructive pulmonary disease
     Dosage: 7.2/5 1-0-1
     Route: 055
     Dates: start: 20210704
  2. BEVESPI AEROSPHERE [Suspect]
     Active Substance: FORMOTEROL FUMARATE\GLYCOPYRROLATE
     Indication: Asthma
     Dosage: 7.2/5 1-0-1
     Route: 055
     Dates: start: 20210704
  3. ALBUTEROL [Concomitant]
     Active Substance: ALBUTEROL
     Dosage: 0,1 AS NEEDED
  4. PREDNISOLONE [Concomitant]
     Active Substance: PREDNISOLONE
     Dosage: 5 MG SUP. 2-0-2 TBL. SUP. 1
  5. AFPRED [Concomitant]
     Dosage: AS NEEDED
  6. FLUTICASONE PROPIONATE\SALMETEROL XINAFOATE [Concomitant]
     Active Substance: FLUTICASONE PROPIONATE\SALMETEROL XINAFOATE
     Indication: Chronic obstructive pulmonary disease
     Dosage: 50/250
     Dates: start: 2004
  7. FLUTICASONE PROPIONATE\SALMETEROL XINAFOATE [Concomitant]
     Active Substance: FLUTICASONE PROPIONATE\SALMETEROL XINAFOATE
     Indication: Asthma
     Dosage: 50/250
     Dates: start: 2004
  8. FLUTICASONE PROPIONATE\SALMETEROL XINAFOATE [Concomitant]
     Active Substance: FLUTICASONE PROPIONATE\SALMETEROL XINAFOATE
     Indication: Chronic obstructive pulmonary disease
     Dosage: 50/250
     Dates: start: 200902
  9. FLUTICASONE PROPIONATE\SALMETEROL XINAFOATE [Concomitant]
     Active Substance: FLUTICASONE PROPIONATE\SALMETEROL XINAFOATE
     Indication: Asthma
     Dosage: 50/250
     Dates: start: 200902
  10. ULUNAR BREEZEHALER [Concomitant]
     Indication: Chronic obstructive pulmonary disease
     Dosage: 85/43
     Dates: start: 2016
  11. ULUNAR BREEZEHALER [Concomitant]
     Indication: Asthma
     Dosage: 85/43
     Dates: start: 2016

REACTIONS (1)
  - Chronic obstructive pulmonary disease [Not Recovered/Not Resolved]
